FAERS Safety Report 13009299 (Version 1)
Quarter: 2016Q4

REPORT INFORMATION
  Report Type: Report from Study
  Country: US (occurrence: US)
  Receive Date: 20161208
  Receipt Date: 20161208
  Transmission Date: 20170207
  Serious: Yes (Hospitalization, Other)
  Sender: FDA-Public Use
  Company Number: US-UCBSA-2016034534

PATIENT
  Age: 16 Month
  Sex: Female

DRUGS (3)
  1. LEVETIRACETAM. [Suspect]
     Active Substance: LEVETIRACETAM
     Indication: SEIZURE
     Dosage: 0.3 ML, UNK
     Dates: start: 2016, end: 2016
  2. LEVETIRACETAM. [Suspect]
     Active Substance: LEVETIRACETAM
     Dosage: 1.2 ML, 2X/DAY (BID)
     Dates: start: 2016
  3. LEVETIRACETAM. [Suspect]
     Active Substance: LEVETIRACETAM
     Dosage: DOSE INCREASED
     Dates: start: 2016, end: 2016

REACTIONS (7)
  - Infantile spasms [Unknown]
  - Dyspepsia [Unknown]
  - Pain [Unknown]
  - Dehydration [Unknown]
  - Seizure [Unknown]
  - Somnolence [Unknown]
  - Nasopharyngitis [Unknown]

NARRATIVE: CASE EVENT DATE: 2016
